FAERS Safety Report 4754110-X (Version None)
Quarter: 2005Q3

REPORT INFORMATION
  Report Type: 
  Country: None (occurrence: None)
  Receive Date: 20050826
  Receipt Date: 20050609
  Transmission Date: 20060218
  Serious: Yes (Death, Other)
  Sender: FDA-Public Use
  Company Number: US-MERCK-0506USA01467

PATIENT
  Age: 68 Year
  Sex: Female
  Weight: 114 kg

DRUGS (11)
  1. SYNTHROID [Concomitant]
     Indication: THYROID DISORDER
     Route: 065
  2. ACIPHEX [Concomitant]
     Indication: GASTROOESOPHAGEAL REFLUX DISEASE
     Route: 065
  3. NEXIUM [Concomitant]
     Indication: GASTROOESOPHAGEAL REFLUX DISEASE
     Route: 065
  4. RANITIDINE [Concomitant]
     Indication: GASTROOESOPHAGEAL REFLUX DISEASE
     Route: 065
  5. BEXTRA [Suspect]
     Route: 065
     Dates: start: 20021210, end: 20030314
  6. METOPROLOL [Concomitant]
     Route: 065
     Dates: start: 20030601, end: 20040101
  7. VIOXX [Suspect]
     Indication: FIBROMYALGIA
     Route: 048
     Dates: start: 20020828, end: 20031222
  8. CIMETIDINE [Concomitant]
     Indication: GASTROOESOPHAGEAL REFLUX DISEASE
     Route: 065
  9. AVANDIA [Concomitant]
     Indication: DIABETES MELLITUS
     Route: 065
  10. HUMULIN [Concomitant]
     Indication: DIABETES MELLITUS
     Route: 065
  11. LISINOPRIL [Concomitant]
     Indication: HYPERTENSION
     Route: 065
     Dates: start: 20021101, end: 20030101

REACTIONS (6)
  - BLOOD CHOLESTEROL INCREASED [None]
  - DEATH [None]
  - HYPERTENSION [None]
  - MYOCARDIAL INFARCTION [None]
  - OEDEMA PERIPHERAL [None]
  - THYROID DISORDER [None]
